FAERS Safety Report 23103276 (Version 1)
Quarter: 2023Q4

REPORT INFORMATION
  Report Type: Spontaneous
  Country: US (occurrence: None)
  Receive Date: 20231024
  Receipt Date: 20231024
  Transmission Date: 20240110
  Serious: Yes (Hospitalization)
  Sender: FDA-Public Use
  Company Number: None

PATIENT
  Sex: Female

DRUGS (1)
  1. COPIKTRA [Suspect]
     Active Substance: DUVELISIB
     Indication: T-lymphocyte count decreased
     Dosage: FREQUENCY : TWICE A DAY;?
     Route: 048
     Dates: start: 20221220

REACTIONS (2)
  - COVID-19 [None]
  - Therapy interrupted [None]
